FAERS Safety Report 10673979 (Version 3)
Quarter: 2015Q1

REPORT INFORMATION
  Report Type: Report from Study
  Country: US (occurrence: US)
  Receive Date: 20141224
  Receipt Date: 20150330
  Transmission Date: 20150720
  Serious: Yes (Hospitalization)
  Sender: FDA-Public Use
  Company Number: US-SA-2014SA176413

PATIENT
  Age: 37 Year
  Sex: Female

DRUGS (1)
  1. AUBAGIO [Suspect]
     Active Substance: TERIFLUNOMIDE
     Indication: MULTIPLE SCLEROSIS
     Route: 048
     Dates: start: 20141201

REACTIONS (6)
  - Brain neoplasm [Recovering/Resolving]
  - Cognitive disorder [Recovering/Resolving]
  - Headache [Recovering/Resolving]
  - Paraesthesia [Unknown]
  - Hypoaesthesia [Recovering/Resolving]
  - Diarrhoea [Unknown]
